FAERS Safety Report 7915997-2 (Version None)
Quarter: 2011Q4

REPORT INFORMATION
  Report Type: 
  Country: None (occurrence: None)
  Receive Date: 20111115
  Receipt Date: 20111109
  Transmission Date: 20120403
  Serious: Yes (Hospitalization)
  Sender: FDA-Public Use
  Company Number: JP-BRACCO-005381

PATIENT
  Age: 82 Year
  Sex: Male

DRUGS (2)
  1. PROHANCE [Suspect]
     Indication: NUCLEAR MAGNETIC RESONANCE IMAGING
     Route: 040
     Dates: start: 20111019, end: 20111019
  2. PROHANCE [Suspect]
     Indication: METASTASES TO BONE
     Route: 040
     Dates: start: 20111019, end: 20111019

REACTIONS (1)
  - SHOCK [None]
